FAERS Safety Report 9369498 (Version 1)
Quarter: 2013Q2

REPORT INFORMATION
  Report Type: Spontaneous
  Country: US (occurrence: US)
  Receive Date: 20130626
  Receipt Date: 20130626
  Transmission Date: 20140414
  Serious: No
  Sender: FDA-Public Use
  Company Number: US-PFIZER INC-2013188104

PATIENT
  Age: 45 Year
  Sex: Male

DRUGS (5)
  1. GEODON [Suspect]
     Dosage: 160 MG, (2 X 80MG), AT BEDTIME
  2. XANAX [Suspect]
     Dosage: 1 MG (3/DAY AS NEEDED)
  3. AMITRIPTYLINE [Suspect]
     Dosage: 200, UNK
  4. LAMICTAL [Suspect]
     Dosage: 25 MG, UNK
  5. ALEVE [Suspect]
     Dosage: UNK, 3X/DAY (3/DAY)

REACTIONS (1)
  - Drug hypersensitivity [Unknown]
